FAERS Safety Report 10222550 (Version 1)
Quarter: 2014Q1

REPORT INFORMATION
  Report Type: Spontaneous
  Country: US (occurrence: None)
  Receive Date: 20140306
  Receipt Date: 20140306
  Transmission Date: 20141002
  Serious: Yes (Other)
  Sender: FDA-Public Use
  Company Number: 163-21880-13050522

PATIENT
  Age: 66 Year
  Sex: Female

DRUGS (2)
  1. REVLIMID (LENALIDOMIDE) (25 MILLIGRAM, CAPSULES) [Suspect]
     Indication: PLASMA CELL MYELOMA
     Dosage: 25 MG, 21 IN 21 D, PO
     Route: 048
     Dates: start: 201102
  2. STEROIDS (CORTICOSTEROIDS) [Concomitant]

REACTIONS (4)
  - Cataract [None]
  - Gastric disorder [None]
  - Irritable bowel syndrome [None]
  - Neuropathy peripheral [None]
